FAERS Safety Report 12770901 (Version 1)
Quarter: 2016Q3

REPORT INFORMATION
  Report Type: Spontaneous
  Country: GB (occurrence: GB)
  Receive Date: 20160922
  Receipt Date: 20160922
  Transmission Date: 20161109
  Serious: Yes (Other)
  Sender: FDA-Public Use
  Company Number: GB-TEVA-693308ACC

PATIENT
  Age: 75 Year
  Sex: Male

DRUGS (2)
  1. WARFARIN [Suspect]
     Active Substance: WARFARIN
     Indication: ANTICOAGULANT THERAPY
  2. ROYAL JELLY [Interacting]
     Active Substance: ROYAL JELLY
     Route: 048
     Dates: start: 20160804

REACTIONS (2)
  - International normalised ratio increased [Unknown]
  - Drug interaction [Recovered/Resolved]
